FAERS Safety Report 5884545-3 (Version None)
Quarter: 2008Q3

REPORT INFORMATION
  Report Type: 
  Country: None (occurrence: None)
  Receive Date: 20080916
  Receipt Date: 20080902
  Transmission Date: 20090109
  Serious: Yes (Other)
  Sender: FDA-Public Use
  Company Number: PHHY2008FR19045

PATIENT
  Sex: Female
  Weight: 59 kg

DRUGS (5)
  1. SANDOSTATIN [Suspect]
     Indication: GROWTH RETARDATION
     Dosage: 10 MG, UNK
     Route: 030
     Dates: start: 20080201
  2. ANTIBIOTICS [Concomitant]
  3. EMLA [Concomitant]
     Dosage: 1 DF, QMO
     Route: 062
  4. TIAPROFENIC ACID [Concomitant]
     Indication: BACK PAIN
     Dosage: UNK
     Route: 048
     Dates: start: 20080805, end: 20080808
  5. CEFTRIAXONE [Concomitant]
     Indication: LYME DISEASE
     Dosage: 2 G/DAY
     Route: 042
     Dates: start: 20080801, end: 20080814

REACTIONS (3)
  - BACK PAIN [None]
  - INJECTION SITE PAIN [None]
  - LYME DISEASE [None]
